FAERS Safety Report 9014408 (Version 1)
Quarter: 2013Q1

REPORT INFORMATION
  Report Type: Spontaneous
  Country: MX (occurrence: MX)
  Receive Date: 20130115
  Receipt Date: 20130115
  Transmission Date: 20140127
  Serious: Yes (Death)
  Sender: FDA-Public Use
  Company Number: PHHY2013MX003158

PATIENT
  Age: 79 Year
  Sex: Female

DRUGS (2)
  1. ONBREZ [Suspect]
     Dosage: 300 UG, QD
     Dates: start: 201207, end: 201212
  2. NIFEDIPINE [Concomitant]

REACTIONS (1)
  - Death [Fatal]
